FAERS Safety Report 4289352-3 (Version None)
Quarter: 2004Q1

REPORT INFORMATION
  Report Type: 
  Country: None (occurrence: None)
  Receive Date: 20040206
  Receipt Date: 20040128
  Transmission Date: 20041129
  Serious: Yes (Hospitalization)
  Sender: FDA-Public Use
  Company Number: JP-JNJFOC-20040200004

PATIENT
  Age: 69 Year
  Sex: Male

DRUGS (10)
  1. RISPERDAL [Suspect]
     Indication: SCHIZOPHRENIA
     Dosage: 4 MG, IN 1 DAY, ORAL
     Route: 048
     Dates: start: 20030616, end: 20030622
  2. DAI-KENCHU-TO (ALL OTHER THERAPEUTIC PRODUCTS) [Concomitant]
  3. MAGNESIUM OXIDE (MAGNESIUM OXIDE) [Concomitant]
  4. LORAZEPAM [Concomitant]
  5. PANTETHINE (PATETHINE) [Concomitant]
  6. ANTIDIARRHEALS, INTESTINAL REGULATORS (ALL OTHER THERAPEUTIC PRODUCTS) [Concomitant]
  7. MOSAPRIDE CITRATE (MOSAPRIDE CITRATE) [Concomitant]
  8. DIMETICONE (DIMETICONE) [Concomitant]
  9. DISTIGMINE BROMIDE (DISTIGMINE BROMIDE) [Concomitant]
  10. PIPERACILLIN SODIUM [Concomitant]

REACTIONS (3)
  - ENTEROCOLITIS [None]
  - EXTRAPYRAMIDAL DISORDER [None]
  - ILEUS PARALYTIC [None]
